FAERS Safety Report 15336432 (Version 3)
Quarter: 2019Q2

REPORT INFORMATION
  Report Type: Spontaneous
  Country: US (occurrence: US)
  Receive Date: 20180830
  Receipt Date: 20190513
  Transmission Date: 20190711
  Serious: Yes (Hospitalization, Other)
  Sender: FDA-Public Use
  Company Number: US-VIFOR (INTERNATIONAL) INC.-VIT-2018-08539

PATIENT
  Sex: Male

DRUGS (10)
  1. VELTASSA [Suspect]
     Active Substance: PATIROMER
     Indication: HYPERKALAEMIA
     Route: 048
     Dates: start: 20180807
  2. METOPROLOL TARTRATE. [Concomitant]
     Active Substance: METOPROLOL TARTRATE
  3. PROAIR HFA [Concomitant]
     Active Substance: ALBUTEROL SULFATE
  4. NOVOLOG [Concomitant]
     Active Substance: INSULIN ASPART
  5. ATORVASTATIN CALCIUM. [Concomitant]
     Active Substance: ATORVASTATIN CALCIUM
  6. LANTUS [Concomitant]
     Active Substance: INSULIN GLARGINE
  7. FOLIC ACID. [Concomitant]
     Active Substance: FOLIC ACID
  8. NEPHRO-VITE RX [Concomitant]
  9. RENVELA [Concomitant]
     Active Substance: SEVELAMER CARBONATE
  10. AMIODARONE HCL [Concomitant]
     Active Substance: AMIODARONE HYDROCHLORIDE

REACTIONS (2)
  - Dialysis [Unknown]
  - Localised infection [Unknown]

NARRATIVE: CASE EVENT DATE: 2018
